FAERS Safety Report 10203997 (Version 2)
Quarter: 2014Q2

REPORT INFORMATION
  Report Type: Spontaneous
  Country: EG (occurrence: None)
  Receive Date: 20140523
  Receipt Date: 20140611
  Transmission Date: 20141212
  Serious: Yes (Death)
  Sender: FDA-Public Use
  Company Number: 2014-EG-006106

PATIENT
  Sex: 0

DRUGS (6)
  1. KIDROLASE [Suspect]
     Indication: B PRECURSOR TYPE ACUTE LEUKAEMIA
     Dosage: 6000 IU/M2/DAY, 3 TIMES A WEEK FOR 9 DOSES, INTRAMUSCULAR
     Route: 030
  2. VINCRISTINE ( VINCRISTINE) [Concomitant]
  3. PREDNISONE ( PREDNISONE) [Concomitant]
  4. DAUNOMYCIN (DAUNOMYCIN) [Concomitant]
  5. ARA-C ( ARA-C) [Concomitant]
  6. METHOTREXATE ( METHOTREXATE) [Concomitant]

REACTIONS (1)
  - Sepsis [None]
